FAERS Safety Report 6937790-X (Version None)
Quarter: 2010Q3

REPORT INFORMATION
  Report Type: 
  Country: None (occurrence: None)
  Receive Date: 20100820
  Receipt Date: 20100820
  Transmission Date: 20110219
  Serious: No
  Sender: FDA-Public Use
  Company Number: None

PATIENT
  Age: 54 Year
  Sex: Male
  Weight: 86.637 kg

DRUGS (4)
  1. ERBITUX [Suspect]
     Indication: HEAD AND NECK CANCER
     Dosage: 814 MG IV (LOADING DOSE)
     Dates: start: 20100819
  2. WELLBUTRIN SR [Concomitant]
  3. LIPITOR [Concomitant]
  4. TENORMIN [Concomitant]

REACTIONS (7)
  - FEELING COLD [None]
  - HEART RATE DECREASED [None]
  - HYPERHIDROSIS [None]
  - INFUSION RELATED REACTION [None]
  - NAUSEA [None]
  - PRURITUS [None]
  - SYNCOPE [None]
